FAERS Safety Report 9999012 (Version 2)
Quarter: 2014Q1

REPORT INFORMATION
  Report Type: Spontaneous
  Country: US (occurrence: US)
  Receive Date: 20140312
  Receipt Date: 20140312
  Transmission Date: 20141002
  Serious: No
  Sender: FDA-Public Use
  Company Number: US-SHIRE-ALL1-2014-00748

PATIENT
  Age: 14 Year
  Sex: Male
  Weight: 56.69 kg

DRUGS (2)
  1. VYVANSE [Suspect]
     Indication: ATTENTION DEFICIT/HYPERACTIVITY DISORDER
     Dosage: UNK (UNKNOWN AMOUNT OF 40 MG), 1X/DAY:QD (SATURDAY AND SUNDAY)
     Route: 048
     Dates: start: 201310
  2. VYVANSE [Suspect]
     Dosage: 40 MG, 1X/DAY:QD (MONDAY THROUGH FRIDAY)
     Route: 048
     Dates: start: 201310

REACTIONS (3)
  - Disturbance in attention [Not Recovered/Not Resolved]
  - Drug prescribing error [Not Recovered/Not Resolved]
  - Product quality issue [Unknown]
